FAERS Safety Report 18879304 (Version 1)
Quarter: 2021Q1

REPORT INFORMATION
  Report Type: Spontaneous
  Country: US (occurrence: US)
  Receive Date: 20210211
  Receipt Date: 20210211
  Transmission Date: 20210420
  Serious: Yes (Hospitalization)
  Sender: FDA-Public Use
  Company Number: None

PATIENT
  Age: 72 Year
  Sex: Female
  Weight: 70.65 kg

DRUGS (15)
  1. DEXAMETHASONE 4MG [Concomitant]
     Active Substance: DEXAMETHASONE
  2. PANTOPRAZOLE 40MG [Concomitant]
     Active Substance: PANTOPRAZOLE SODIUM
  3. ACYCLOVIR 400MG [Concomitant]
     Active Substance: ACYCLOVIR
  4. FUROSEMIDE 40MG [Concomitant]
     Active Substance: FUROSEMIDE
  5. VELCADE [Concomitant]
     Active Substance: BORTEZOMIB
  6. METOPROLOL TARTRATE 25MG [Concomitant]
     Active Substance: METOPROLOL TARTRATE
  7. POTASSIUM 10MEQ [Concomitant]
  8. VENTOLIN HFA 108MCG [Concomitant]
  9. CYCLOPHOSPHAMIDE. [Suspect]
     Active Substance: CYCLOPHOSPHAMIDE
     Indication: PLASMA CELL MYELOMA
     Dosage: ?          OTHER FREQUENCY:QWEEK X3WEEKS,1OFF;?
     Route: 048
     Dates: start: 20200922
  10. ONDANSETRON 8MG [Concomitant]
     Active Substance: ONDANSETRON
  11. SYMBICORT 160?4.5MCCG [Concomitant]
  12. ASPIRIN 81MG [Concomitant]
     Active Substance: ASPIRIN
  13. ATORVASTATIN 80MG [Concomitant]
     Active Substance: ATORVASTATIN
  14. MONTELUKAST [Concomitant]
     Active Substance: MONTELUKAST SODIUM
  15. LOSARTAN 100MG [Concomitant]
     Active Substance: LOSARTAN

REACTIONS (1)
  - Dyspnoea [None]

NARRATIVE: CASE EVENT DATE: 20210127
